FAERS Safety Report 15243675 (Version 1)
Quarter: 2018Q3

REPORT INFORMATION
  Report Type: Spontaneous
  Country: US (occurrence: US)
  Receive Date: 20180806
  Receipt Date: 20180806
  Transmission Date: 20181010
  Serious: Yes (Other)
  Sender: FDA-Public Use
  Company Number: US-BAYER-2018-143195

PATIENT
  Age: 4 Year
  Sex: Female
  Weight: 17 kg

DRUGS (2)
  1. CLARITIN [Suspect]
     Active Substance: LORATADINE
     Indication: SINUSITIS
     Dosage: 1 TEASPOON DOSE
     Route: 048
     Dates: start: 20180728, end: 20180728
  2. OMNICEF [Concomitant]
     Active Substance: CEFDINIR
     Dosage: UNK

REACTIONS (7)
  - Pyrexia [Recovering/Resolving]
  - Adverse drug reaction [Recovering/Resolving]
  - Lethargy [Recovering/Resolving]
  - Somnolence [Recovering/Resolving]
  - Product use in unapproved indication [Unknown]
  - Unresponsive to stimuli [Unknown]
  - Off label use [Unknown]

NARRATIVE: CASE EVENT DATE: 20180728
